FAERS Safety Report 18161142 (Version 3)
Quarter: 2020Q3

REPORT INFORMATION
  Report Type: Spontaneous
  Country: VN (occurrence: VN)
  Receive Date: 20200818
  Receipt Date: 20200831
  Transmission Date: 20201103
  Serious: Yes (Other)
  Sender: FDA-Public Use
  Company Number: VN-ROCHE-2642347

PATIENT
  Sex: Female

DRUGS (2)
  1. HERCEPTIN [Suspect]
     Active Substance: TRASTUZUMAB
     Indication: HER2 POSITIVE BREAST CANCER
     Route: 058
     Dates: start: 20200416, end: 20200710
  2. HERCEPTIN [Suspect]
     Active Substance: TRASTUZUMAB
     Indication: HER2 POSITIVE BREAST CANCER
     Route: 042
     Dates: start: 20191016

REACTIONS (5)
  - Pain [Recovering/Resolving]
  - Arthralgia [Recovering/Resolving]
  - Spinal pain [Recovering/Resolving]
  - Pelvic pain [Recovering/Resolving]
  - Pain in extremity [Recovering/Resolving]
